FAERS Safety Report 9802557 (Version 1)
Quarter: 2014Q1

REPORT INFORMATION
  Report Type: Spontaneous
  Country: US (occurrence: US)
  Receive Date: 20140108
  Receipt Date: 20140108
  Transmission Date: 20141002
  Serious: Yes (Other)
  Sender: FDA-Public Use
  Company Number: US-009507513-1401USA001190

PATIENT
  Sex: Male
  Weight: 77.98 kg

DRUGS (3)
  1. SINEMET [Suspect]
     Indication: PARKINSON^S DISEASE
     Dosage: A DOSE OF 25/100MG, 5 TIMES PER DAY
     Route: 048
     Dates: start: 200906
  2. MIRAPEX [Suspect]
     Indication: PARKINSON^S DISEASE
     Dosage: A DOSE OF 1.5 MG DAILY
     Dates: start: 201112
  3. VIAGRA [Concomitant]
     Dosage: UNK

REACTIONS (3)
  - Renal cancer [Unknown]
  - Nephrectomy [Unknown]
  - Confusional state [Unknown]
